FAERS Safety Report 6535367-1 (Version None)
Quarter: 2010Q1

REPORT INFORMATION
  Report Type: 
  Country: None (occurrence: None)
  Receive Date: 20100111
  Receipt Date: 20100111
  Transmission Date: 20100710
  Serious: No
  Sender: FDA-Public Use
  Company Number: None

PATIENT
  Age: 59 Year
  Sex: Female
  Weight: 85.2762 kg

DRUGS (2)
  1. ZICAM NASAL GEL SPRAY [Suspect]
     Indication: NASOPHARYNGITIS
     Dosage: 1-2 SPRAYS IN AM NASAL
     Route: 045
     Dates: start: 20090211, end: 20090213
  2. ZICAM NASAL GEL SPRAY [Suspect]
     Indication: VIRAL INFECTION
     Dosage: 1-2 SPRAYS IN AM NASAL
     Route: 045
     Dates: start: 20090211, end: 20090213

REACTIONS (3)
  - AGEUSIA [None]
  - ANOSMIA [None]
  - NASAL DISCOMFORT [None]
